FAERS Safety Report 9507201 (Version 1)
Quarter: 2013Q1

REPORT INFORMATION
  Report Type: Spontaneous
  Country: US (occurrence: None)
  Receive Date: 20130305
  Receipt Date: 20130305
  Transmission Date: 20140127
  Serious: Yes (Other)
  Sender: FDA-Public Use
  Company Number: 163-21880-12052490

PATIENT
  Age: 82 Year
  Sex: Female

DRUGS (3)
  1. REVLIMID (LENALIDOMIDE) (CAPSULES) [Suspect]
     Indication: PLASMA CELL MYELOMA
     Dosage: 15 MG, 21 IN 21 D, PO
     Route: 048
     Dates: start: 20111212
  2. ARANESP (DARBEPOETIN ALFA) (UNKNOWN) [Concomitant]
  3. LEVAQUIN (LEVOLOXACIN) (UNKNOWN) [Concomitant]

REACTIONS (2)
  - Anaemia [None]
  - Fatigue [None]
